FAERS Safety Report 8183896-X (Version None)
Quarter: 2012Q1

REPORT INFORMATION
  Report Type: 
  Country: None (occurrence: None)
  Receive Date: 20120305
  Receipt Date: 20120228
  Transmission Date: 20120608
  Serious: Yes (Death, Hospitalization)
  Sender: FDA-Public Use
  Company Number: KR-PFIZER INC-2011134779

PATIENT
  Age: 19 Year
  Sex: Male

DRUGS (3)
  1. TYGACIL [Suspect]
     Indication: ESCHERICHIA INFECTION
     Dosage: 50 MG, EVERY 12 HOURS
     Route: 042
     Dates: end: 20110613
  2. METRONIDAZOLE [Suspect]
     Indication: CLOSTRIDIUM DIFFICILE COLITIS
  3. TYGACIL [Suspect]
     Indication: SKIN INFECTION
     Dosage: 100 MG, 1 TIME
     Route: 042
     Dates: start: 20110607

REACTIONS (5)
  - DIARRHOEA [None]
  - ESCHERICHIA SEPSIS [None]
  - SEPTIC SHOCK [None]
  - DRUG INEFFECTIVE [None]
  - MEGACOLON [None]
